FAERS Safety Report 8136289-5 (Version None)
Quarter: 2012Q1

REPORT INFORMATION
  Report Type: 
  Country: None (occurrence: None)
  Receive Date: 20120214
  Receipt Date: 20120203
  Transmission Date: 20120608
  Serious: Yes (Death)
  Sender: FDA-Public Use
  Company Number: GB-MILLENNIUM PHARMACEUTICALS, INC.-2011-06013

PATIENT

DRUGS (9)
  1. ADCAL D3 [Concomitant]
     Indication: OSTEOPOROSIS
  2. ALLOPURINOL [Concomitant]
     Indication: GOUT
     Dosage: 100 MG, UNK
     Dates: start: 20100701
  3. FLUCONAZOLE [Concomitant]
     Dosage: 100 MG, UNK
     Dates: start: 20100701
  4. DEXAMETHASONE [Concomitant]
     Indication: MULTIPLE MYELOMA
     Dosage: UNK
     Dates: start: 20110704, end: 20110922
  5. FENTANYL [Concomitant]
     Indication: PAIN
     Dosage: 50 UG, UNK
     Dates: start: 20100701
  6. OMEPRAZOLE [Concomitant]
     Indication: DYSPEPSIA
     Dosage: 200 MG, UNK
  7. LEVOTHYROXINE SODIUM [Concomitant]
     Indication: HYPERTHYROIDISM
     Dosage: 50 UG, UNK
     Dates: start: 20100701
  8. VELCADE [Suspect]
     Indication: MULTIPLE MYELOMA
     Dosage: 1.3 MG/M2, UNK
     Route: 042
     Dates: start: 20110704, end: 20110922
  9. ACYCLOVIR [Concomitant]
     Indication: PROPHYLAXIS
     Dosage: 400 MG, UNK
     Dates: start: 20100701

REACTIONS (6)
  - ANAEMIA [None]
  - PAIN [None]
  - RENAL FAILURE [None]
  - HYPERCALCAEMIA [None]
  - COMA [None]
  - DRUG INEFFECTIVE [None]
